FAERS Safety Report 9256897 (Version 4)
Quarter: 2013Q2

REPORT INFORMATION
  Report Type: Report from Study
  Country: JP (occurrence: JP)
  Receive Date: 20130426
  Receipt Date: 20130621
  Transmission Date: 20140414
  Serious: Yes (Hospitalization)
  Sender: FDA-Public Use
  Company Number: JP-009507513-1304JPN015019

PATIENT
  Age: 63 Year
  Sex: Female
  Weight: 48.8 kg

DRUGS (10)
  1. DEXAMETHASONE [Suspect]
     Indication: PLASMA CELL MYELOMA
     Dosage: 20 MG, QD
     Route: 048
     Dates: start: 20130129, end: 20130330
  2. DEXAMETHASONE [Suspect]
     Dosage: 20 MG, QD
     Route: 048
     Dates: start: 20130507
  3. STUDY DRUG (UNSPECIFIED) [Suspect]
     Indication: PLASMA CELL MYELOMA
     Dosage: 300 MG, UNK
     Dates: start: 20130129, end: 20130319
  4. STUDY DRUG (UNSPECIFIED) [Suspect]
     Dosage: 300 MG, UNK
     Dates: start: 20130507
  5. BORTEZOMIB [Suspect]
     Indication: PLASMA CELL MYELOMA
     Dosage: 1.3 MG/M2, UNK
     Dates: start: 20130129, end: 20130329
  6. BORTEZOMIB [Suspect]
     Dosage: 1.3 MG/M2, UNK
     Dates: start: 20130507
  7. ACYCLOVIR [Concomitant]
     Indication: PROPHYLAXIS
     Dosage: 200 MG, UNK
  8. BAKTAR [Concomitant]
     Indication: PROPHYLAXIS
     Dosage: UNK
  9. LANSOPRAZOLE [Concomitant]
     Indication: PROPHYLAXIS AGAINST GASTROINTESTINAL ULCER
     Dosage: 15 MG, UNK
     Dates: start: 20130128
  10. DEXAMETHASONE [Concomitant]
     Dosage: UNK
     Route: 048
     Dates: start: 20130326, end: 20130327

REACTIONS (1)
  - Venous thrombosis limb [Recovering/Resolving]
